FAERS Safety Report 11759915 (Version 1)
Quarter: 2015Q4

REPORT INFORMATION
  Report Type: Spontaneous
  Country: US (occurrence: US)
  Receive Date: 20151120
  Receipt Date: 20151120
  Transmission Date: 20160304
  Serious: No
  Sender: FDA-Public Use
  Company Number: US-ELI_LILLY_AND_COMPANY-US201210007850

PATIENT
  Age: 71 Year
  Sex: Female

DRUGS (1)
  1. FORTEO [Suspect]
     Active Substance: TERIPARATIDE
     Indication: OSTEOPOROSIS
     Dosage: 20 UG, QD
     Dates: start: 20121015, end: 20121024

REACTIONS (12)
  - Chronic obstructive pulmonary disease [Unknown]
  - Joint swelling [Unknown]
  - Intentional product misuse [Not Recovered/Not Resolved]
  - Back pain [Unknown]
  - Painful respiration [Unknown]
  - Musculoskeletal chest pain [Unknown]
  - Peripheral swelling [Unknown]
  - Muscle spasms [Unknown]
  - Chest pain [Unknown]
  - Feeling abnormal [Unknown]
  - Asthenia [Unknown]
  - Nausea [Unknown]

NARRATIVE: CASE EVENT DATE: 20121024
